FAERS Safety Report 7322771-7 (Version None)
Quarter: 2011Q1

REPORT INFORMATION
  Report Type: 
  Country: None (occurrence: None)
  Receive Date: 20110301
  Receipt Date: 20110223
  Transmission Date: 20110831
  Serious: Yes (Death)
  Sender: FDA-Public Use
  Company Number: JP-ASTELLAS-2011JP000965

PATIENT
  Sex: Male
  Weight: 68 kg

DRUGS (12)
  1. PREDNISOLONE [Suspect]
     Dosage: 50 MG, UNKNOWN/D
     Route: 065
     Dates: start: 20101124
  2. WARFARIN [Concomitant]
     Route: 065
  3. STERONEMA [Suspect]
     Dosage: 3 MG, UNKNOWN/D
     Route: 054
     Dates: start: 20101220
  4. PREDNISOLONE [Suspect]
     Dosage: 60 MG, UNKNOWN/D
     Route: 065
     Dates: start: 20101111
  5. PREDNISOLONE [Suspect]
     Dosage: 30 MG, UNKNOWN/D
     Route: 065
     Dates: start: 20101201, end: 20101220
  6. PROGRAF [Suspect]
     Indication: COLITIS ULCERATIVE
     Dosage: 0.8 MG, UNKNOWN/D
     Route: 048
     Dates: start: 20101227
  7. PROGRAF [Suspect]
     Dosage: 3 MG, UNKNOWN/D
     Route: 048
     Dates: start: 20101127
  8. PROGRAF [Suspect]
     Dosage: 0.4 MG, UNKNOWN/D
     Route: 048
     Dates: start: 20110112
  9. STERONEMA [Suspect]
     Dosage: 1.5 MG, UNKNOWN/D
     Route: 054
     Dates: start: 20110112
  10. PENTASA [Concomitant]
     Dosage: 4 G, UNKNOWN/D
     Route: 065
     Dates: start: 20101111
  11. PROGRAF [Suspect]
     Dosage: 2 MG, UNKNOWN/D
     Route: 048
     Dates: start: 20101207
  12. DENOSINE [Concomitant]
     Dosage: 10 MG, UNKNOWN/D
     Route: 065
     Dates: start: 20101225

REACTIONS (1)
  - PNEUMOCYSTIS JIROVECI PNEUMONIA [None]
